FAERS Safety Report 10070165 (Version 1)
Quarter: 2014Q2

REPORT INFORMATION
  Report Type: Spontaneous
  Country: GB (occurrence: None)
  Receive Date: 20140408
  Receipt Date: 20140408
  Transmission Date: 20141212
  Serious: Yes (Other)
  Sender: FDA-Public Use
  Company Number: 2273832

PATIENT
  Age: 24 Year
  Sex: Female
  Weight: 108 kg

DRUGS (3)
  1. GEMTAMICINE [Suspect]
     Indication: ANTIBIOTIC PROPHYLAXIS
     Dosage: 320 MG MILLIGRAM(S) (UNKNOWN) INTRAVENOUS (NOT OTHERWISE SPECIFIED)
     Route: 042
     Dates: start: 20131002, end: 20131002
  2. METRONIDAZOLE [Suspect]
     Indication: PROPHYLAXIS
     Dosage: 500 MG MILLIGRAM(S) (UNKNOWN) INTRAVENOUS (NOT OTHERWISE SPECIFIED)
     Route: 042
     Dates: start: 20131002, end: 20131002
  3. ANESTHETICS [Concomitant]

REACTIONS (4)
  - Drug hypersensitivity [None]
  - Wheezing [None]
  - Swelling face [None]
  - Eye pruritus [None]
